FAERS Safety Report 10071664 (Version 1)
Quarter: 2014Q2

REPORT INFORMATION
  Report Type: Spontaneous
  Country: BR (occurrence: BR)
  Receive Date: 20140411
  Receipt Date: 20140411
  Transmission Date: 20141212
  Serious: Yes (Other)
  Sender: FDA-Public Use
  Company Number: BR-AMGEN INC.-BRASP2014025830

PATIENT
  Age: 37 Year
  Sex: Female
  Weight: 110 kg

DRUGS (10)
  1. ENBREL [Suspect]
     Indication: RHEUMATOID ARTHRITIS
     Dosage: 50 MG (1 APPLICATION) PER WEEK
     Route: 065
     Dates: start: 201306
  2. CELEBRA [Concomitant]
     Indication: SYSTEMIC LUPUS ERYTHEMATOSUS
     Dosage: UNK
     Dates: start: 2002
  3. CELEBRA [Concomitant]
     Indication: INTERVERTEBRAL DISC PROTRUSION
     Dosage: UNK
  4. CELEBRA [Concomitant]
     Indication: EXOSTOSIS
     Dosage: UNK
  5. TRAMAL [Concomitant]
     Indication: SYSTEMIC LUPUS ERYTHEMATOSUS
     Dosage: UNK
     Dates: start: 2002
  6. TRAMAL [Concomitant]
     Indication: INTERVERTEBRAL DISC PROTRUSION
     Dosage: UNK
  7. TRAMAL [Concomitant]
     Indication: EXOSTOSIS
     Dosage: UNK
  8. LEVOID [Concomitant]
     Indication: THYROID DISORDER
     Dosage: UNK
  9. PANTOPRAZOLE [Concomitant]
     Indication: GASTROOESOPHAGEAL REFLUX DISEASE
     Dosage: UNK
  10. DOMPERIDONE [Concomitant]
     Indication: GASTROOESOPHAGEAL REFLUX DISEASE
     Dosage: UNK

REACTIONS (5)
  - Cerebrovascular accident [Unknown]
  - Wrong technique in drug usage process [Unknown]
  - Nervousness [Unknown]
  - Injection site pain [Not Recovered/Not Resolved]
  - Injection site haematoma [Recovered/Resolved]
